FAERS Safety Report 13792959 (Version 1)
Quarter: 2017Q3

REPORT INFORMATION
  Report Type: Spontaneous
  Country: US (occurrence: US)
  Receive Date: 20170726
  Receipt Date: 20170726
  Transmission Date: 20171127
  Serious: Yes (Other)
  Sender: FDA-Public Use
  Company Number: None

PATIENT
  Sex: Female
  Weight: 78.75 kg

DRUGS (7)
  1. IBUPROFEN. [Concomitant]
     Active Substance: IBUPROFEN
  2. PROLIA [Concomitant]
     Active Substance: DENOSUMAB
  3. BUPROPION HYDROCHLORIDE SR [Suspect]
     Active Substance: BUPROPION HYDROCHLORIDE
     Indication: AFFECTIVE DISORDER
     Route: 048
  4. ATORVASTATIN [Concomitant]
     Active Substance: ATORVASTATIN
  5. MELATONIN [Concomitant]
     Active Substance: MELATONIN
  6. OXCARBAZEPINE. [Concomitant]
     Active Substance: OXCARBAZEPINE
  7. VALERIAN ROOT [Concomitant]
     Active Substance: VALERIAN

REACTIONS (1)
  - Aphthous ulcer [None]

NARRATIVE: CASE EVENT DATE: 20170724
